FAERS Safety Report 6141845-X (Version None)
Quarter: 2009Q2

REPORT INFORMATION
  Report Type: 
  Country: None (occurrence: None)
  Receive Date: 20090402
  Receipt Date: 20090324
  Transmission Date: 20091009
  Serious: Yes (Other)
  Sender: FDA-Public Use
  Company Number: US-JNJFOC-20090200499

PATIENT
  Age: 6 Year
  Sex: Male

DRUGS (2)
  1. INVEGA [Suspect]
     Indication: PSYCHOTIC DISORDER
     Route: 048
  2. INVEGA [Suspect]
     Indication: AGGRESSION
     Route: 048

REACTIONS (2)
  - DYSTONIA [None]
  - WRONG TECHNIQUE IN DRUG USAGE PROCESS [None]
